FAERS Safety Report 7070948-0 (Version None)
Quarter: 2010Q4

REPORT INFORMATION
  Report Type: 
  Country: None (occurrence: None)
  Receive Date: 20101029
  Receipt Date: 20101021
  Transmission Date: 20110411
  Serious: Yes (Death, Hospitalization, Other)
  Sender: FDA-Public Use
  Company Number: PHHY2010BR72207

PATIENT
  Sex: Male

DRUGS (1)
  1. STALEVO 100 [Suspect]
     Dosage: 50/12.5/20 MG

REACTIONS (8)
  - DEMENTIA ALZHEIMER'S TYPE [None]
  - DIZZINESS [None]
  - FALL [None]
  - LIMB INJURY [None]
  - MULTI-ORGAN FAILURE [None]
  - NOSOCOMIAL INFECTION [None]
  - PNEUMONIA [None]
  - SEPTIC SHOCK [None]
